FAERS Safety Report 9379334 (Version 1)
Quarter: 2013Q2

REPORT INFORMATION
  Report Type: Spontaneous
  Country: US (occurrence: None)
  Receive Date: 20130626
  Receipt Date: 20130626
  Transmission Date: 20140414
  Serious: Yes (Death)
  Sender: FDA-Public Use
  Company Number: ACCP20130002

PATIENT
  Age: 10 Year
  Sex: Female
  Weight: 44.5 kg

DRUGS (4)
  1. ACETAMINOPHEN AND CODEINE PHOSPHATE [Suspect]
     Indication: PAIN
     Dosage: 2 DOSES, EVERY 4HRS AS NEEDED
     Route: 048
  2. DIAZEPAM (DIAZEPAM) [Suspect]
     Indication: MUSCLE SPASMS
     Dosage: 1 DOSE, EVERY 4 HRS AS NEEDED
     Route: 048
  3. BUDESONIDE (BUDESONIDE) (SOLUTION) (BUDESONIDE) [Concomitant]
  4. MULTIVITAMINS (ERGOCALCIFEROL, ASCORBIC ACID, FOLIC ACID, THIAMINE HYDRCHLORIDE, RETINOL, RIBOFLAVIN, NICOTINAMIDE, PANTHENOL) [Concomitant]

REACTIONS (8)
  - Peripheral coldness [None]
  - Unresponsive to stimuli [None]
  - Pulmonary oedema [None]
  - Respiratory depression [None]
  - Accidental death [None]
  - Toxicity to various agents [None]
  - Drug interaction [None]
  - Sleep apnoea syndrome [None]
